FAERS Safety Report 10660404 (Version 5)
Quarter: 2015Q1

REPORT INFORMATION
  Report Type: Spontaneous
  Country: US (occurrence: US)
  Receive Date: 20141217
  Receipt Date: 20150303
  Transmission Date: 20150720
  Serious: Yes (Other)
  Sender: FDA-Public Use
  Company Number: US-GLAXOSMITHKLINE-A1085390A

PATIENT
  Age: 61 Year
  Sex: Male

DRUGS (1)
  1. VOTRIENT [Suspect]
     Active Substance: PAZOPANIB HYDROCHLORIDE
     Indication: RENAL CANCER
     Dosage: 800 MG, QD
     Dates: start: 20140731, end: 20150218

REACTIONS (6)
  - Diarrhoea [Unknown]
  - Vomiting [Unknown]
  - Oropharyngeal pain [Unknown]
  - Renal cancer metastatic [Not Recovered/Not Resolved]
  - Gastrointestinal disorder [Unknown]
  - Infection [Unknown]

NARRATIVE: CASE EVENT DATE: 20140731
